FAERS Safety Report 12649648 (Version 1)
Quarter: 2016Q3

REPORT INFORMATION
  Report Type: Spontaneous
  Country: CZ (occurrence: CZ)
  Receive Date: 20160812
  Receipt Date: 20160812
  Transmission Date: 20161109
  Serious: Yes (Hospitalization)
  Sender: FDA-Public Use
  Company Number: PHHY2016CZ109375

PATIENT
  Age: 15 Month
  Sex: Male

DRUGS (4)
  1. SPIROPENT [Concomitant]
     Active Substance: CLENBUTEROL HYDROCHLORIDE
     Indication: PRODUCT USED FOR UNKNOWN INDICATION
     Route: 065
  2. MUCOSOLVAN [Concomitant]
     Active Substance: AMBROXOL HYDROCHLORIDE
     Indication: PRODUCT USED FOR UNKNOWN INDICATION
     Route: 065
  3. VIGANTOL//COLECALCIFEROL [Concomitant]
     Indication: PRODUCT USED FOR UNKNOWN INDICATION
     Route: 065
  4. OSPEN [Suspect]
     Active Substance: PENICILLIN V
     Indication: RESPIRATORY TRACT INFECTION
     Dosage: 2.5 ML, ONCE/SINGLE
     Route: 048
     Dates: start: 20160612, end: 20160612

REACTIONS (6)
  - Dyspnoea [Unknown]
  - Tonic posturing [Unknown]
  - Generalised tonic-clonic seizure [Unknown]
  - Hypertonia [Unknown]
  - Petit mal epilepsy [Unknown]
  - Gaze palsy [Unknown]

NARRATIVE: CASE EVENT DATE: 20160612
